FAERS Safety Report 26058416 (Version 1)
Quarter: 2025Q4

REPORT INFORMATION
  Report Type: Spontaneous
  Country: CN (occurrence: CN)
  Receive Date: 20251118
  Receipt Date: 20251118
  Transmission Date: 20260117
  Serious: Yes (Other)
  Sender: RANBAXY
  Company Number: CN-SUN PHARMACEUTICAL INDUSTRIES INC-2025R1-536784

PATIENT
  Age: 52 Year
  Sex: Male

DRUGS (3)
  1. CEFTRIAXONE [Suspect]
     Active Substance: CEFTRIAXONE
     Indication: Nocardiosis
     Dosage: 4 GRAM, DAILY
     Route: 042
  2. COTRIMOXAZOLE [Suspect]
     Active Substance: SULFAMETHOXAZOLE\TRIMETHOPRIM
     Indication: Nocardiosis
     Dosage: 160 MG/800 MG TWICE DAILY
     Route: 065
  3. AMIKACIN [Concomitant]
     Active Substance: AMIKACIN
     Indication: Nocardiosis
     Dosage: 0.4 GRAM, DAILY
     Route: 065

REACTIONS (5)
  - Myelosuppression [Unknown]
  - Hepatotoxicity [Unknown]
  - Leukopenia [Unknown]
  - Anaemia [Unknown]
  - Transaminases increased [Unknown]
